FAERS Safety Report 10543765 (Version 2)
Quarter: 2014Q4

REPORT INFORMATION
  Report Type: Spontaneous
  Country: IT (occurrence: None)
  Receive Date: 20141023
  Receipt Date: 20141125
  Transmission Date: 20150529
  Serious: Yes (Hospitalization)
  Sender: FDA-Public Use
  Company Number: FK201404348

PATIENT
  Age: 57 Year
  Sex: Male

DRUGS (2)
  1. OXALIPLATIN. [Suspect]
     Active Substance: OXALIPLATIN
     Indication: RECTAL ADENOCARCINOMA
     Dosage: 250 MG, Y, INTRAVENOUS DRIP
     Route: 041
     Dates: start: 20140912, end: 20140912
  2. CAPECITABINE (CAPECITABINE) (CAPECITABINE) [Concomitant]
     Active Substance: CAPECITABINE

REACTIONS (3)
  - Dialysis [None]
  - Acute kidney injury [None]
  - Renal failure [None]

NARRATIVE: CASE EVENT DATE: 20140914
